FAERS Safety Report 20447861 (Version 3)
Quarter: 2022Q3

REPORT INFORMATION
  Report Type: Report from Study
  Country: US (occurrence: None)
  Receive Date: 20220209
  Receipt Date: 20220929
  Transmission Date: 20221027
  Serious: Yes (Hospitalization)
  Sender: FDA-Public Use
  Company Number: US-Merck Healthcare KGaA-9298188

PATIENT
  Age: 64 Year
  Sex: Female

DRUGS (1)
  1. REBIF [Suspect]
     Active Substance: INTERFERON BETA-1A
     Indication: Multiple sclerosis
     Route: 058
     Dates: start: 20010201

REACTIONS (5)
  - Cerebrovascular accident [Recovering/Resolving]
  - Fall [Unknown]
  - Asthenia [Unknown]
  - Muscular weakness [Unknown]
  - Incontinence [Unknown]

NARRATIVE: CASE EVENT DATE: 20210101
